FAERS Safety Report 7761473-X (Version None)
Quarter: 2011Q3

REPORT INFORMATION
  Report Type: 
  Country: None (occurrence: None)
  Receive Date: 20110920
  Receipt Date: 20110906
  Transmission Date: 20111222
  Serious: No
  Sender: FDA-Public Use
  Company Number: US-B.I. PHARMACEUTICALS,INC./RIDGEFIELD-2011-BP-19337BP

PATIENT
  Age: 74 Year
  Sex: Male
  Weight: 83.91 kg

DRUGS (5)
  1. PRADAXA [Suspect]
     Indication: ATRIAL FIBRILLATION
     Dosage: 300 MG
     Dates: start: 20110501, end: 20110729
  2. CRESTOR [Concomitant]
     Dosage: 10 MG
  3. ASPIRIN [Concomitant]
     Dosage: 325 MG
  4. NIFEDIPINE [Concomitant]
     Dosage: 60 MG
  5. PERCOCET [Concomitant]

REACTIONS (1)
  - DIZZINESS [None]
